FAERS Safety Report 13376489 (Version 1)
Quarter: 2017Q1

REPORT INFORMATION
  Report Type: Spontaneous
  Country: US (occurrence: US)
  Receive Date: 20170327
  Receipt Date: 20170327
  Transmission Date: 20170429
  Serious: No
  Sender: FDA-Public Use
  Company Number: None

PATIENT
  Age: 83 Year
  Sex: Male

DRUGS (1)
  1. RITUXIMAB [Suspect]
     Active Substance: RITUXIMAB
     Route: 042
     Dates: start: 20170119, end: 20170119

REACTIONS (5)
  - Nausea [None]
  - Tachycardia [None]
  - Vomiting [None]
  - Chills [None]
  - Wheezing [None]

NARRATIVE: CASE EVENT DATE: 20170119
